FAERS Safety Report 8781557 (Version 2)
Quarter: 2013Q4

REPORT INFORMATION
  Report Type: Spontaneous
  Country: US (occurrence: US)
  Receive Date: 20120913
  Receipt Date: 20131031
  Transmission Date: 20140711
  Serious: Yes (Hospitalization, Other)
  Sender: FDA-Public Use
  Company Number: US-009507513-1209USA003292

PATIENT
  Sex: Male

DRUGS (12)
  1. ISENTRESS [Suspect]
     Route: 048
  2. NORVIR [Suspect]
     Route: 048
  3. PREZISTA [Suspect]
     Route: 048
  4. CYMEVAN CAPSULES [Concomitant]
  5. SODIUM CHLORIDE [Concomitant]
  6. POTASSIUM CHLORIDE [Concomitant]
  7. CALCIUM GLUCONATE [Concomitant]
  8. FORTIMEL [Concomitant]
  9. DEXERYL CREAM [Concomitant]
  10. DIFFU-K [Concomitant]
  11. FOSCAVIR [Concomitant]
  12. FUNGIZONE [Concomitant]

REACTIONS (15)
  - Lymphocyte morphology abnormal [Unknown]
  - Hyperbilirubinaemia [Unknown]
  - Aspartate aminotransferase increased [Unknown]
  - Dry skin [Unknown]
  - Drug reaction with eosinophilia and systemic symptoms [Unknown]
  - Pyrexia [Unknown]
  - Cytomegalovirus infection [Unknown]
  - Hyponatraemia [Unknown]
  - Proteus infection [Unknown]
  - Diabetes mellitus [Unknown]
  - Alanine aminotransferase increased [Unknown]
  - Staphylococcal sepsis [Unknown]
  - Eosinophilia [Unknown]
  - Dermatitis exfoliative [Unknown]
  - Genital ulceration [Unknown]
